FAERS Safety Report 9207461 (Version 1)
Quarter: 2013Q2

REPORT INFORMATION
  Report Type: Spontaneous
  Country: US (occurrence: US)
  Receive Date: 20130403
  Receipt Date: 20130403
  Transmission Date: 20140414
  Serious: Yes (Hospitalization)
  Sender: FDA-Public Use
  Company Number: US-JNJFOC-20130316553

PATIENT
  Sex: Female
  Weight: 82.56 kg

DRUGS (1)
  1. REMICADE [Suspect]
     Indication: CROHN^S DISEASE
     Route: 042
     Dates: end: 2009

REACTIONS (2)
  - Large intestinal stenosis [Recovered/Resolved]
  - Alopecia [Recovered/Resolved]
